FAERS Safety Report 4524854-3 (Version None)
Quarter: 2004Q4

REPORT INFORMATION
  Report Type: 
  Country: None (occurrence: None)
  Receive Date: 20041210
  Receipt Date: 20041210
  Transmission Date: 20050328
  Serious: Yes (Life-Threatening)
  Sender: FDA-Public Use
  Company Number: None

PATIENT
  Sex: Female
  Weight: 98.8842 kg

DRUGS (12)
  1. CYTOXAN [Suspect]
     Indication: BREAST CANCER
     Dosage: 600 MG/M2 EVERY 2 WEEKS IV
     Route: 042
     Dates: start: 20040901
  2. CYTOXAN [Suspect]
     Indication: BREAST CANCER
     Dosage: 600 MG/M2 EVERY 2 WEEKS IV
     Route: 042
     Dates: start: 20040916
  3. CYTOXAN [Suspect]
     Indication: BREAST CANCER
     Dosage: 600 MG/M2 EVERY 2 WEEKS IV
     Route: 042
     Dates: start: 20041001
  4. CYTOXAN [Suspect]
     Indication: BREAST CANCER
     Dosage: 600 MG/M2 EVERY 2 WEEKS IV
     Route: 042
     Dates: start: 20041014
  5. CYTOXAN [Suspect]
     Indication: BREAST CANCER
     Dosage: 600 MG/M2 EVERY 2 WEEKS IV
     Route: 042
     Dates: start: 20041029
  6. CYTOXAN [Suspect]
     Indication: BREAST CANCER
     Dosage: 600 MG/M2 EVERY 2 WEEKS IV
     Route: 042
     Dates: start: 20041116
  7. ADRIAMYCIN PFS [Suspect]
     Indication: BREAST CANCER
     Dosage: 60 MG/M2 EVERY 2 WEEKS IV
     Route: 042
     Dates: start: 20040901
  8. ADRIAMYCIN PFS [Suspect]
     Indication: BREAST CANCER
     Dosage: 60 MG/M2 EVERY 2 WEEKS IV
     Route: 042
     Dates: start: 20040916
  9. ADRIAMYCIN PFS [Suspect]
     Indication: BREAST CANCER
     Dosage: 60 MG/M2 EVERY 2 WEEKS IV
     Route: 042
     Dates: start: 20041001
  10. ADRIAMYCIN PFS [Suspect]
     Indication: BREAST CANCER
     Dosage: 60 MG/M2 EVERY 2 WEEKS IV
     Route: 042
     Dates: start: 20041014
  11. ADRIAMYCIN PFS [Suspect]
     Indication: BREAST CANCER
     Dosage: 60 MG/M2 EVERY 2 WEEKS IV
     Route: 042
     Dates: start: 20041029
  12. ADRIAMYCIN PFS [Suspect]
     Indication: BREAST CANCER
     Dosage: 60 MG/M2 EVERY 2 WEEKS IV
     Route: 042
     Dates: start: 20041116

REACTIONS (6)
  - DECREASED APPETITE [None]
  - DRUG ABUSER [None]
  - EATING DISORDER [None]
  - HYPOKALAEMIA [None]
  - LOOSE STOOLS [None]
  - WEIGHT DECREASED [None]
